FAERS Safety Report 10368244 (Version 14)
Quarter: 2018Q2

REPORT INFORMATION
  Report Type: Report from Study
  Country: PL (occurrence: PL)
  Receive Date: 20140807
  Receipt Date: 20180515
  Transmission Date: 20180711
  Serious: Yes (Hospitalization)
  Sender: FDA-Public Use
  Company Number: PL-ROCHE-1445011

PATIENT
  Age: 86 Year
  Sex: Female
  Weight: 65.5 kg

DRUGS (61)
  1. CAPTOPRILUM [Concomitant]
     Route: 065
     Dates: start: 20140804, end: 20140804
  2. DEXAMETHASON [Concomitant]
     Active Substance: DEXAMETHASONE
     Route: 042
     Dates: start: 20141208, end: 20141208
  3. PARACETAMOLUM [Concomitant]
     Active Substance: ACETAMINOPHEN
     Route: 048
     Dates: start: 20141208, end: 20141208
  4. CLEMASTINUM [Concomitant]
     Active Substance: CLEMASTINE FUMARATE
     Route: 042
     Dates: start: 20140825, end: 20140825
  5. ACICLOVIR [Concomitant]
     Active Substance: ACYCLOVIR
     Route: 048
     Dates: start: 20140801, end: 20140812
  6. FORTUM [Concomitant]
     Active Substance: CEFTAZIDIME
     Route: 042
     Dates: start: 20140801, end: 20140811
  7. FLUCONAZOLUM [Concomitant]
     Route: 042
     Dates: start: 20140801, end: 20140807
  8. CHLORAMBUCIL [Suspect]
     Active Substance: CHLORAMBUCIL
     Dosage: C1D15
     Route: 048
     Dates: start: 20140901
  9. MOLSIDOMINA [Concomitant]
     Active Substance: MOLSIDOMINE
     Route: 065
     Dates: start: 2014
  10. ZOCOR [Concomitant]
     Active Substance: SIMVASTATIN
     Route: 048
     Dates: start: 20140627
  11. AMLOZEK [Concomitant]
     Active Substance: AMLODIPINE BESYLATE
     Route: 048
     Dates: start: 20140806
  12. DEXAMETHASON [Concomitant]
     Active Substance: DEXAMETHASONE
     Route: 042
     Dates: start: 20141112, end: 20141112
  13. PARACETAMOLUM [Concomitant]
     Active Substance: ACETAMINOPHEN
     Route: 048
     Dates: start: 20141013, end: 20141013
  14. CLEMASTINUM [Concomitant]
     Active Substance: CLEMASTINE FUMARATE
     Route: 042
     Dates: start: 20140729, end: 20140729
  15. CLEMASTINUM [Concomitant]
     Active Substance: CLEMASTINE FUMARATE
     Route: 042
     Dates: start: 20140901, end: 20140901
  16. CLEMASTINUM [Concomitant]
     Active Substance: CLEMASTINE FUMARATE
     Route: 042
     Dates: start: 20140819, end: 20140819
  17. BIOFUROKSYM [Concomitant]
     Active Substance: CEFUROXIME SODIUM
     Route: 042
     Dates: start: 20140730, end: 20140801
  18. ENCORTON [Concomitant]
     Active Substance: PREDNISONE
     Indication: PROPHYLAXIS
     Route: 048
     Dates: start: 20140902, end: 20140905
  19. FLUCONAZOLUM [Concomitant]
     Route: 048
     Dates: start: 20140809, end: 20140812
  20. PARACETAMOLUM [Concomitant]
     Active Substance: ACETAMINOPHEN
     Route: 048
     Dates: start: 20150107, end: 20150107
  21. ALLOPURINOL. [Concomitant]
     Active Substance: ALLOPURINOL
     Route: 048
     Dates: start: 20140819, end: 20140820
  22. NILOGRIN [Concomitant]
     Route: 048
     Dates: start: 2000
  23. CHLORAMBUCIL [Suspect]
     Active Substance: CHLORAMBUCIL
     Indication: CHRONIC LYMPHOCYTIC LEUKAEMIA
     Dosage: AS PER PROTOCOL, DOSE ADMINISTERED ON DAY 1 AND 15 OF EACH CYCLE.?LAST DOSE PRIOR TO SAE:  29/JUL/20
     Route: 048
     Dates: start: 20140729
  24. DEXAMETHASON [Concomitant]
     Active Substance: DEXAMETHASONE
     Route: 042
     Dates: start: 20140819, end: 20140819
  25. DEXAMETHASON [Concomitant]
     Active Substance: DEXAMETHASONE
     Route: 042
     Dates: start: 20150107, end: 20150107
  26. PARACETAMOLUM [Concomitant]
     Active Substance: ACETAMINOPHEN
     Route: 048
     Dates: start: 20140915, end: 20140915
  27. OBINUTUZUMAB. [Suspect]
     Active Substance: OBINUTUZUMAB
     Dosage: C1D2?DOSE OF C1D2 WAS DELAYED AND ADMINISTERED ON 19/AUG/2014 INSTEAD OF 30/JUL/2014.?AS PER PROTOCO
     Route: 042
     Dates: start: 20140819, end: 20140819
  28. LORISTA H [Concomitant]
     Active Substance: HYDROCHLOROTHIAZIDE\LOSARTAN POTASSIUM
     Route: 048
     Dates: start: 2000, end: 20140806
  29. ACARD [Concomitant]
     Active Substance: ASPIRIN
     Route: 048
     Dates: start: 20140627, end: 20140803
  30. DEXAMETHASON [Concomitant]
     Active Substance: DEXAMETHASONE
     Route: 042
     Dates: start: 20140915, end: 20140915
  31. PARACETAMOLUM [Concomitant]
     Active Substance: ACETAMINOPHEN
     Route: 048
     Dates: start: 20140901, end: 20140901
  32. PARACETAMOLUM [Concomitant]
     Active Substance: ACETAMINOPHEN
     Route: 048
     Dates: start: 20140107, end: 20140107
  33. CLEMASTINUM [Concomitant]
     Active Substance: CLEMASTINE FUMARATE
     Route: 042
     Dates: start: 20141112, end: 20141112
  34. ALLOPURINOL. [Concomitant]
     Active Substance: ALLOPURINOL
     Indication: PROPHYLAXIS
     Route: 048
     Dates: start: 20140729, end: 20140803
  35. AMIKIN [Concomitant]
     Active Substance: AMIKACIN SULFATE
     Route: 042
     Dates: start: 20140801, end: 20140811
  36. CAPTOPRIL. [Concomitant]
     Active Substance: CAPTOPRIL
     Route: 060
     Dates: start: 20140804, end: 20140804
  37. CAPTOPRIL. [Concomitant]
     Active Substance: CAPTOPRIL
     Route: 060
     Dates: start: 20140820, end: 20140820
  38. ENCORTON [Concomitant]
     Active Substance: PREDNISONE
     Route: 048
     Dates: start: 20141014, end: 20141017
  39. HYDROCHLOROTHIAZIDE. [Concomitant]
     Active Substance: HYDROCHLOROTHIAZIDE
     Route: 048
     Dates: start: 20140806
  40. DEXAMETHASON [Concomitant]
     Active Substance: DEXAMETHASONE
     Route: 042
     Dates: start: 20140901, end: 20140901
  41. DEXAMETHASON [Concomitant]
     Active Substance: DEXAMETHASONE
     Route: 042
     Dates: start: 20141013, end: 20141013
  42. PARACETAMOLUM [Concomitant]
     Active Substance: ACETAMINOPHEN
     Route: 048
     Dates: start: 20141112, end: 20141112
  43. CLEMASTINUM [Concomitant]
     Active Substance: CLEMASTINE FUMARATE
     Route: 042
     Dates: start: 20141208, end: 20141208
  44. OBINUTUZUMAB. [Suspect]
     Active Substance: OBINUTUZUMAB
     Indication: CHRONIC LYMPHOCYTIC LEUKAEMIA
     Dosage: C1D1?LAST DOSE RECEIVED PRIOR TO SAE: 29/JUL/2014
     Route: 042
     Dates: start: 20140729, end: 20140730
  45. MOLSIDOMINA [Concomitant]
     Active Substance: MOLSIDOMINE
     Route: 048
     Dates: start: 2000
  46. TENSART (POLAND) [Concomitant]
     Route: 048
     Dates: start: 20140806
  47. DEXAMETHASON [Concomitant]
     Active Substance: DEXAMETHASONE
     Indication: PROPHYLAXIS
     Dosage: CYCLE 1 DAY1 :  100 MG AT INFUSION RATE OF 25 ON 29/JUL/2014?CYCLE 1 DAY2 :  900 MG AT INFUSION RATE
     Route: 042
     Dates: start: 20140728, end: 20140729
  48. PARACETAMOLUM [Concomitant]
     Active Substance: ACETAMINOPHEN
     Indication: PROPHYLAXIS
     Route: 048
     Dates: start: 20140729, end: 20140729
  49. PARACETAMOLUM [Concomitant]
     Active Substance: ACETAMINOPHEN
     Route: 048
     Dates: start: 20140819, end: 20140819
  50. PARACETAMOLUM [Concomitant]
     Active Substance: ACETAMINOPHEN
     Route: 048
     Dates: start: 20140825, end: 20140825
  51. CLEMASTINUM [Concomitant]
     Active Substance: CLEMASTINE FUMARATE
     Route: 042
     Dates: start: 20140915, end: 20140915
  52. ALLOPURINOL. [Concomitant]
     Active Substance: ALLOPURINOL
     Route: 048
     Dates: start: 20140704, end: 20140812
  53. METAMIZOLUM NATRICUM [Concomitant]
     Route: 042
     Dates: start: 20140730, end: 20140730
  54. DEXAMETHASON [Concomitant]
     Active Substance: DEXAMETHASONE
     Route: 042
     Dates: start: 20140825, end: 20140825
  55. CLEMASTINUM [Concomitant]
     Active Substance: CLEMASTINE FUMARATE
     Route: 042
     Dates: start: 20141013, end: 20141013
  56. CLEMASTINUM [Concomitant]
     Active Substance: CLEMASTINE FUMARATE
     Dosage: SINGLE DOSE
     Route: 042
     Dates: start: 20150107, end: 20150107
  57. ALLOPURINOL. [Concomitant]
     Active Substance: ALLOPURINOL
     Route: 048
     Dates: start: 20140825, end: 20140826
  58. ALLOPURINOL. [Concomitant]
     Active Substance: ALLOPURINOL
     Route: 048
     Dates: start: 20140901, end: 20140901
  59. LAKCID [Concomitant]
     Active Substance: LACTOBACILLUS ACIDOPHILUS
     Route: 048
     Dates: start: 20140731, end: 20140825
  60. ENCORTON [Concomitant]
     Active Substance: PREDNISONE
     Route: 048
     Dates: start: 20141209, end: 20141212
  61. ENCORTON [Concomitant]
     Active Substance: PREDNISONE
     Route: 048
     Dates: start: 20141113, end: 20141115

REACTIONS (2)
  - Drug-induced liver injury [Recovered/Resolved]
  - Thrombocytopenia [Recovered/Resolved]

NARRATIVE: CASE EVENT DATE: 20140730
